FAERS Safety Report 10475136 (Version 1)
Quarter: 2014Q3

REPORT INFORMATION
  Report Type: Spontaneous
  Country: US (occurrence: None)
  Receive Date: 20140924
  Receipt Date: 20140924
  Transmission Date: 20150326
  Serious: Yes (Other)
  Sender: FDA-Public Use
  Company Number: None

PATIENT
  Age: 72 Year
  Sex: Male
  Weight: 81.19 kg

DRUGS (6)
  1. ATORVASTATIN [Suspect]
     Active Substance: ATORVASTATIN
     Indication: DIABETES MELLITUS
     Dosage: 1, QD, ORAL
     Route: 048
     Dates: start: 20140821, end: 20140821
  2. METFORMIN [Concomitant]
     Active Substance: METFORMIN HYDROCHLORIDE
  3. ASA [Concomitant]
     Active Substance: ASPIRIN
  4. ALBUTEROL MDI [Concomitant]
  5. ATORVASTATIN [Suspect]
     Active Substance: ATORVASTATIN
     Indication: BLOOD CHOLESTEROL INCREASED
     Dosage: 1, QD, ORAL
     Route: 048
     Dates: start: 20140821, end: 20140821
  6. QVAR [Concomitant]
     Active Substance: BECLOMETHASONE DIPROPIONATE

REACTIONS (1)
  - Cognitive disorder [None]

NARRATIVE: CASE EVENT DATE: 20140821
